FAERS Safety Report 16072646 (Version 1)
Quarter: 2019Q1

REPORT INFORMATION
  Report Type: Spontaneous
  Country: US (occurrence: US)
  Receive Date: 20190213
  Receipt Date: 20190213
  Transmission Date: 20190418
  Serious: Yes (Disabling)
  Sender: FDA-Public Use
  Company Number: None

PATIENT
  Age: 70 Year
  Sex: Male
  Weight: 84.82 kg

DRUGS (6)
  1. SUMPTRIPTAN [Concomitant]
  2. FLOMAX [Concomitant]
     Active Substance: TAMSULOSIN HYDROCHLORIDE
  3. MULTIVITAMIN [Concomitant]
     Active Substance: VITAMINS
  4. PREDNISONE. [Concomitant]
     Active Substance: PREDNISONE
  5. CIPRO [Suspect]
     Active Substance: CIPROFLOXACIN HYDROCHLORIDE
     Indication: ANTIBIOTIC PROPHYLAXIS
     Dosage: ?          QUANTITY:500MG-1PO BID;?
     Route: 048
     Dates: start: 20181211, end: 20181215
  6. VITAMIN D [Concomitant]
     Active Substance: CHOLECALCIFEROL

REACTIONS (6)
  - Musculoskeletal stiffness [None]
  - Fluid retention [None]
  - Tendon pain [None]
  - Skin mass [None]
  - Cardiac tamponade [None]
  - Muscle haemorrhage [None]

NARRATIVE: CASE EVENT DATE: 20181217
